FAERS Safety Report 23267601 (Version 1)
Quarter: 2023Q4

REPORT INFORMATION
  Report Type: Spontaneous
  Country: US (occurrence: None)
  Receive Date: 20231205
  Receipt Date: 20231205
  Transmission Date: 20240110
  Serious: Yes (Disabling, Other)
  Sender: FDA-Public Use
  Company Number: None

PATIENT
  Age: 37 Year
  Sex: Female
  Weight: 45 kg

DRUGS (4)
  1. QULIPTA [Suspect]
     Active Substance: ATOGEPANT
     Indication: Migraine
     Dosage: OTHER QUANTITY : 1 TABLET(S);?FREQUENCY : DAILY;?
     Route: 048
     Dates: start: 20231025, end: 20231201
  2. Multi-vitamin daily [Concomitant]
  3. LUTEIN [Concomitant]
     Active Substance: LUTEIN
  4. PROBIOTICS NOS [Concomitant]
     Active Substance: PROBIOTICS NOS

REACTIONS (6)
  - Amenorrhoea [None]
  - Vaginal discharge [None]
  - Dry mouth [None]
  - Tongue discomfort [None]
  - Taste disorder [None]
  - Feeling abnormal [None]

NARRATIVE: CASE EVENT DATE: 20231201
